FAERS Safety Report 13840533 (Version 1)
Quarter: 2017Q3

REPORT INFORMATION
  Report Type: Spontaneous
  Country: CH (occurrence: CH)
  Receive Date: 20170807
  Receipt Date: 20170807
  Transmission Date: 20171127
  Serious: Yes (Death)
  Sender: FDA-Public Use
  Company Number: CH-EAGLE PHARMACEUTICALS, INC.-CH-2017EAG000076

PATIENT
  Age: 71 Year

DRUGS (2)
  1. RITUXIMAB. [Suspect]
     Active Substance: RITUXIMAB
     Indication: HAIRY CELL LEUKAEMIA
     Dosage: UNK
  2. BENDAMUSTINE HYDROCLHORIDE [Suspect]
     Active Substance: BENDAMUSTINE HYDROCHLORIDE
     Indication: HAIRY CELL LEUKAEMIA
     Dosage: UNK

REACTIONS (1)
  - Septic shock [Fatal]
